FAERS Safety Report 13183347 (Version 1)
Quarter: 2017Q1

REPORT INFORMATION
  Report Type: Spontaneous
  Country: US (occurrence: US)
  Receive Date: 20170202
  Receipt Date: 20170202
  Transmission Date: 20170428
  Serious: Yes (Hospitalization)
  Sender: FDA-Public Use
  Company Number: None

PATIENT
  Age: 1 Year
  Sex: Female

DRUGS (5)
  1. PULMOZYME [Suspect]
     Active Substance: DORNASE ALFA
     Indication: CYSTIC FIBROSIS
     Dosage: DOSE AMOUNT - 1MG/1ML INHALATION - QD
     Route: 055
     Dates: start: 20160817
  2. BETHKIS [Suspect]
     Active Substance: TOBRAMYCIN
     Indication: CYSTIC FIBROSIS
     Dosage: DOSE AMOUNT - 300 MG/ML - INHALATION - BID
     Route: 055
     Dates: start: 20161123
  3. ALBUTEROL. [Concomitant]
     Active Substance: ALBUTEROL
  4. SINGULAIR [Concomitant]
     Active Substance: MONTELUKAST SODIUM
  5. AQUADIKS [Concomitant]

REACTIONS (1)
  - Hospitalisation [None]

NARRATIVE: CASE EVENT DATE: 20170130
